APPROVED DRUG PRODUCT: GOCOVRI
Active Ingredient: AMANTADINE HYDROCHLORIDE
Strength: EQ 68.5MG BASE
Dosage Form/Route: CAPSULE, EXTENDED RELEASE;ORAL
Application: N208944 | Product #001
Applicant: SUPERNUS PHARMACEUTICALS INC
Approved: Aug 24, 2017 | RLD: Yes | RS: No | Type: RX

PATENTS:
Patent 8389578 | Expires: Jan 22, 2028
Patent 9867792 | Expires: Dec 2, 2030
Patent 9867791 | Expires: Dec 2, 2030
Patent 9877933 | Expires: Dec 2, 2030
Patent 10154971 | Expires: Dec 4, 2034
Patent 8741343 | Expires: Dec 2, 2030
Patent 9867793 | Expires: Dec 2, 2030
Patent 11197835 | Expires: Dec 2, 2030
Patent 12233033 | Expires: Aug 23, 2038
Patent 12233033 | Expires: Aug 23, 2038
Patent 12233033 | Expires: Aug 23, 2038
Patent 10646456 | Expires: Jun 17, 2034
Patent 11077073 | Expires: Aug 23, 2038
Patent 11077073 | Expires: Aug 23, 2038
Patent 11077073 | Expires: Aug 23, 2038
Patent 11903908 | Expires: Jun 17, 2034
Patent 11065213 | Expires: Aug 23, 2038